FAERS Safety Report 13051866 (Version 2)
Quarter: 2016Q4

REPORT INFORMATION
  Report Type: Spontaneous
  Country: JP (occurrence: JP)
  Receive Date: 20161221
  Receipt Date: 20161227
  Transmission Date: 20170207
  Serious: Yes (Life-Threatening)
  Sender: FDA-Public Use
  Company Number: JP-TEVA-2016-JP-003024J

PATIENT
  Age: 1 Year
  Sex: Female

DRUGS (2)
  1. VEEN-D [Concomitant]
     Active Substance: DEXTROSE
     Indication: INFUSION
     Route: 041
     Dates: start: 20161208, end: 20161208
  2. CERCINE [Suspect]
     Active Substance: DIAZEPAM
     Indication: STATUS EPILEPTICUS
     Route: 042
     Dates: start: 20161208, end: 20161208

REACTIONS (1)
  - Respiratory arrest [Recovered/Resolved]

NARRATIVE: CASE EVENT DATE: 20161208
